FAERS Safety Report 5379548-1 (Version None)
Quarter: 2007Q3

REPORT INFORMATION
  Report Type: 
  Country: None (occurrence: None)
  Receive Date: 20070703
  Receipt Date: 20070622
  Transmission Date: 20080115
  Serious: Yes (Hospitalization)
  Sender: FDA-Public Use
  Company Number: 2007BI005858

PATIENT
  Age: 57 Year
  Sex: Female
  Weight: 95.2554 kg

DRUGS (7)
  1. AVONEX [Suspect]
     Indication: MULTIPLE SCLEROSIS
     Dosage: 7.5 UG; QW; IM
     Route: 030
     Dates: start: 20061101, end: 20070101
  2. INSULIN [Concomitant]
  3. STALEVO 100 [Concomitant]
  4. METANX [Concomitant]
  5. EXELON [Concomitant]
  6. SINEMET [Concomitant]
  7. TRILEPTAL [Concomitant]

REACTIONS (2)
  - NERVOUS SYSTEM DISORDER [None]
  - TREMOR [None]
